FAERS Safety Report 6793350-5 (Version None)
Quarter: 2010Q2

REPORT INFORMATION
  Report Type: 
  Country: None (occurrence: None)
  Receive Date: 20100624
  Receipt Date: 20100607
  Transmission Date: 20101027
  Serious: Yes (Hospitalization, Other)
  Sender: FDA-Public Use
  Company Number: US-MYLANLABS-2009S1021620

PATIENT
  Age: 60 Year
  Sex: Female

DRUGS (24)
  1. CLOZAPINE [Suspect]
     Indication: SCHIZOPHRENIA
     Route: 048
     Dates: start: 20050216
  2. CLOZAPINE [Suspect]
     Route: 048
     Dates: start: 20050216
  3. CLOZAPINE [Suspect]
     Route: 048
     Dates: end: 20100209
  4. SYNTHROID [Concomitant]
     Route: 048
  5. ZYPREXA [Concomitant]
     Route: 048
  6. ASPIRIN [Concomitant]
     Route: 048
  7. AMLODIPINE BESYLATE [Concomitant]
     Indication: BLOOD PRESSURE INCREASED
     Route: 048
  8. LORATADINE [Concomitant]
     Indication: NASOPHARYNGITIS
     Route: 048
  9. VITAMIN TAB [Concomitant]
     Route: 048
  10. ACTOS [Concomitant]
     Route: 048
  11. TERAZOSIN [Concomitant]
     Indication: BLOOD PRESSURE INCREASED
     Route: 048
  12. SIMVASTATIN [Concomitant]
     Indication: BLOOD CHOLESTEROL INCREASED
     Route: 048
  13. SERTRALINE HCL [Concomitant]
     Route: 048
  14. METANX [Concomitant]
     Route: 048
  15. LORAZEPAM [Concomitant]
     Route: 048
  16. DOCUSATE CALCIUM [Concomitant]
     Route: 048
  17. ENALAPRIL MALEATE [Concomitant]
     Route: 048
  18. FERROUS SULFATE TAB [Concomitant]
     Route: 048
  19. METFORMIN HCL [Concomitant]
     Route: 048
  20. NOVOLIN N [Concomitant]
     Route: 058
  21. NOVOLIN N [Concomitant]
     Route: 058
  22. ACETAMINOPHEN [Concomitant]
     Indication: PAIN
     Dosage: AS NEEDED
     Route: 048
  23. MECLIZINE [Concomitant]
     Dosage: PRN FOR NAUSEA OR DIZZINESS
     Route: 048
  24. ANTIBIOTICS FOR TOPICAL USE [Concomitant]
     Indication: OPEN WOUND
     Route: 061

REACTIONS (2)
  - GRANULOCYTOPENIA [None]
  - WHITE BLOOD CELL COUNT DECREASED [None]
